FAERS Safety Report 10934767 (Version 1)
Quarter: 2015Q1

REPORT INFORMATION
  Report Type: Spontaneous
  Country: US (occurrence: US)
  Receive Date: 20150320
  Receipt Date: 20150320
  Transmission Date: 20150721
  Serious: No
  Sender: FDA-Public Use
  Company Number: US-GALDERMA-US14004642

PATIENT
  Age: 40 Year
  Sex: Female

DRUGS (3)
  1. MIRVASO [Suspect]
     Active Substance: BRIMONIDINE TARTRATE
     Indication: ROSACEA
     Dosage: 0.33%
     Route: 061
     Dates: start: 201411, end: 201411
  2. MIRVASO [Suspect]
     Active Substance: BRIMONIDINE TARTRATE
     Dosage: 0.33%
     Route: 061
     Dates: start: 201411, end: 201411
  3. METRONIDAZOLE GEL, 1% [Concomitant]
     Active Substance: METRONIDAZOLE
     Indication: ROSACEA
     Dosage: 1%
     Route: 061

REACTIONS (4)
  - Pruritus [Unknown]
  - Rash morbilliform [Unknown]
  - Skin burning sensation [Unknown]
  - Rebound effect [Unknown]

NARRATIVE: CASE EVENT DATE: 201411
